FAERS Safety Report 10235436 (Version 1)
Quarter: 2014Q2

REPORT INFORMATION
  Report Type: Spontaneous
  Country: IR (occurrence: IR)
  Receive Date: 20140613
  Receipt Date: 20140613
  Transmission Date: 20141212
  Serious: Yes (Other)
  Sender: FDA-Public Use
  Company Number: IR-MYLANLABS-2014S1013514

PATIENT
  Age: 61 Year
  Sex: Male

DRUGS (7)
  1. CICLOSPORIN [Suspect]
     Indication: IMMUNOSUPPRESSION
     Dosage: 6 MG/KG
     Route: 065
  2. CICLOSPORIN [Interacting]
     Indication: IMMUNOSUPPRESSION
     Dosage: 200 MG DAILY (2.2MG/KG)
     Route: 065
  3. METHYLPREDNISOLONE [Suspect]
     Indication: IMMUNOSUPPRESSION
     Dosage: 1000 MG DAILY
     Route: 065
  4. PREDNISOLONE [Suspect]
     Indication: IMMUNOSUPPRESSION
     Dosage: 1MG/KG DAILY
     Route: 065
  5. PREDNISOLONE [Suspect]
     Indication: IMMUNOSUPPRESSION
     Dosage: 5 MG DAILY
     Route: 065
  6. MYCOPHENOLATE MOFETIL [Suspect]
     Indication: IMMUNOSUPPRESSION
     Dosage: 2000 MG DAILY
     Route: 065
  7. GLIVEC [Interacting]
     Indication: CHRONIC MYELOID LEUKAEMIA
     Dosage: 200 MG DAILY
     Route: 065

REACTIONS (3)
  - Chronic myeloid leukaemia [Recovering/Resolving]
  - Blood creatinine increased [Recovered/Resolved]
  - Drug interaction [Recovered/Resolved]
